FAERS Safety Report 8076210-1 (Version None)
Quarter: 2012Q1

REPORT INFORMATION
  Report Type: 
  Country: None (occurrence: None)
  Receive Date: 20120127
  Receipt Date: 20120118
  Transmission Date: 20120608
  Serious: Yes (Hospitalization)
  Sender: FDA-Public Use
  Company Number: JP-PFIZER INC-2012017957

PATIENT
  Age: 89 Year
  Sex: Male

DRUGS (8)
  1. CARVEDILOL [Concomitant]
     Dosage: 5 MG/DAY
     Route: 048
  2. ALLOPURINOL [Concomitant]
     Dosage: 200 MG/DAY
     Route: 048
  3. ENALAPRIL MALEATE [Concomitant]
     Dosage: 10 MG/DAY
     Route: 048
  4. HOKUNALIN [Concomitant]
     Dosage: 2 MG/DAY
  5. SINGULAIR [Concomitant]
     Dosage: 10 MG/DAY
     Route: 048
  6. ZOSYN [Suspect]
     Indication: PNEUMONIA
     Route: 041
  7. VOLTAREN [Suspect]
     Indication: PNEUMONIA
     Dosage: 25 MG/DAY
     Route: 054
  8. FAMOTIDINE [Concomitant]
     Dosage: 40 MG/DAY
     Route: 048

REACTIONS (1)
  - ASTHMA [None]
